FAERS Safety Report 23251373 (Version 1)
Quarter: 2023Q4

REPORT INFORMATION
  Report Type: Spontaneous
  Country: US (occurrence: None)
  Receive Date: 20231130
  Receipt Date: 20231130
  Transmission Date: 20240110
  Serious: Yes (Other)
  Sender: FDA-Public Use
  Company Number: None

PATIENT
  Age: 34 Year
  Sex: Female

DRUGS (1)
  1. LUPRON DEPOT [Suspect]
     Active Substance: LEUPROLIDE ACETATE
     Dosage: OTHER FREQUENCY : EVERY 3;?
     Dates: start: 20230821

REACTIONS (3)
  - Pain in extremity [None]
  - Arthralgia [None]
  - Dyspnoea [None]

NARRATIVE: CASE EVENT DATE: 20231123
